FAERS Safety Report 4358170-X (Version None)
Quarter: 2004Q2

REPORT INFORMATION
  Report Type: 
  Country: None (occurrence: None)
  Receive Date: 20040511
  Receipt Date: 20040427
  Transmission Date: 20050107
  Serious: Yes (Hospitalization)
  Sender: FDA-Public Use
  Company Number: 2004AP02513

PATIENT
  Age: 80 Year
  Sex: Male

DRUGS (5)
  1. IRESSA [Suspect]
     Indication: NON-SMALL CELL LUNG CANCER
     Dosage: 250 MG DAILY PO
     Route: 048
     Dates: start: 20040414, end: 20040416
  2. CARBOPLATIN [Concomitant]
  3. DOCETAXEL [Concomitant]
  4. GEMCITABINE [Concomitant]
  5. VINORELBINE TARTRATE [Concomitant]

REACTIONS (4)
  - C-REACTIVE PROTEIN INCREASED [None]
  - JAUNDICE [None]
  - LIVER DISORDER [None]
  - PYREXIA [None]
